FAERS Safety Report 5726194-3 (Version None)
Quarter: 2008Q2

REPORT INFORMATION
  Report Type: 
  Country: None (occurrence: None)
  Receive Date: 20080502
  Receipt Date: 20080422
  Transmission Date: 20081010
  Serious: Yes (Hospitalization)
  Sender: FDA-Public Use
  Company Number: IT-AMGEN-US275860

PATIENT
  Sex: Male

DRUGS (2)
  1. ENBREL [Suspect]
     Indication: PSORIASIS
     Dosage: LYOPHILIZED (25 MG)
     Route: 058
     Dates: start: 20051207, end: 20070101
  2. ENBREL [Suspect]
     Dosage: PRE-FILLED SYRINGE (25 MG)
     Route: 058
     Dates: start: 20070101, end: 20070926

REACTIONS (1)
  - PULMONARY TUBERCULOSIS [None]
